FAERS Safety Report 10419016 (Version 4)
Quarter: 2014Q4

REPORT INFORMATION
  Report Type: Report from Study
  Country: JP (occurrence: JP)
  Receive Date: 20140829
  Receipt Date: 20141229
  Transmission Date: 20150528
  Serious: Yes (Hospitalization)
  Sender: FDA-Public Use
  Company Number: JP-PFIZER INC-2014237121

PATIENT
  Age: 41 Year
  Sex: Female
  Weight: 52.5 kg

DRUGS (13)
  1. LOXONIN [Concomitant]
     Active Substance: LOXOPROFEN SODIUM
     Dosage: 60 MG, 3X/DAY
     Route: 048
     Dates: start: 20140520
  2. TRAMAL [Concomitant]
     Active Substance: TRAMADOL
     Dosage: 50 MG, 4X/DAY
     Route: 048
     Dates: start: 20140616, end: 20140722
  3. TALION [Concomitant]
     Active Substance: BEPOTASTINE
     Dosage: 10 MG, 2X/DAY
     Route: 048
     Dates: start: 20140606
  4. MAGMITT [Concomitant]
     Active Substance: MAGNESIUM OXIDE
     Dosage: 330 MG, 3X/DAY
     Route: 048
     Dates: start: 20140614, end: 20140719
  5. TAKEPRON OD [Concomitant]
     Active Substance: LANSOPRAZOLE
     Dosage: 15 MG, 1X/DAY
     Route: 048
     Dates: start: 20140616
  6. EMEND [Concomitant]
     Active Substance: APREPITANT
     Dosage: 125 MG, 1X/DAY
     Route: 048
     Dates: start: 20140618, end: 20140618
  7. EMEND [Concomitant]
     Active Substance: APREPITANT
     Dosage: 80 MG, 1X/DAY
     Route: 048
     Dates: start: 20140619, end: 20140620
  8. XALKORI [Suspect]
     Active Substance: CRIZOTINIB
     Indication: NON-SMALL CELL LUNG CANCER
     Dosage: 250 MG, 2X/DAY
     Route: 048
     Dates: start: 20140618, end: 20140626
  9. XALKORI [Suspect]
     Active Substance: CRIZOTINIB
     Dosage: UNK
  10. NOVAMIN [Concomitant]
     Active Substance: PROCHLORPERAZINE MALEATE
     Dosage: 5 MG, 3X/DAY
     Route: 048
     Dates: start: 20140618, end: 20140702
  11. DECADRON [Concomitant]
     Active Substance: DEXAMETHASONE
     Dosage: 2 MG, 2X/DAY
     Route: 048
     Dates: start: 20140617, end: 20140623
  12. DECADRON [Concomitant]
     Active Substance: DEXAMETHASONE
     Dosage: 1 MG, 2X/DAY
     Route: 048
     Dates: start: 20140624, end: 20140628
  13. CODEINE PHOSPHATE [Concomitant]
     Active Substance: CODEINE PHOSPHATE
     Dosage: 2 G, 3X/DAY
     Route: 048
     Dates: start: 20140613, end: 20140719

REACTIONS (1)
  - Haemoptysis [Recovered/Resolved]

NARRATIVE: CASE EVENT DATE: 20140626
